FAERS Safety Report 25458981 (Version 1)
Quarter: 2025Q2

REPORT INFORMATION
  Report Type: Spontaneous
  Country: RU (occurrence: RU)
  Receive Date: 20250620
  Receipt Date: 20250620
  Transmission Date: 20250717
  Serious: Yes (Other)
  Sender: ORGANON
  Company Number: RU-ORGANON-O2506RUS001433

PATIENT
  Sex: Female

DRUGS (1)
  1. ETONOGESTREL [Suspect]
     Active Substance: ETONOGESTREL
     Route: 065

REACTIONS (4)
  - Vaginal haemorrhage [Unknown]
  - Complication of device removal [Recovered/Resolved]
  - Device issue [Recovered/Resolved]
  - Device deployment issue [Recovered/Resolved]
